FAERS Safety Report 8601546-2 (Version None)
Quarter: 2012Q3

REPORT INFORMATION
  Report Type: 
  Country: None (occurrence: None)
  Receive Date: 20120817
  Receipt Date: 20111122
  Transmission Date: 20120928
  Serious: Yes (Other)
  Sender: FDA-Public Use
  Company Number: US-BRISTOL-MYERS SQUIBB COMPANY-16213761

PATIENT
  Age: 67 Year
  Sex: Female

DRUGS (5)
  1. SPRYCEL [Suspect]
     Indication: CHRONIC MYELOID LEUKAEMIA
     Dosage: STARTED 3 MONTHS AGO.NOW TAKING 50MG ON EVERY MONDAY/WEDNESDAY/FRIDAY.
  2. PROTONIX [Concomitant]
  3. NEXIUM [Concomitant]
  4. LABETALOL HCL [Concomitant]
  5. KEPPRA [Concomitant]

REACTIONS (1)
  - PANCYTOPENIA [None]
